FAERS Safety Report 9283824 (Version 1)
Quarter: 2013Q2

REPORT INFORMATION
  Report Type: Spontaneous
  Country: US (occurrence: US)
  Receive Date: 20130510
  Receipt Date: 20130510
  Transmission Date: 20140414
  Serious: No
  Sender: FDA-Public Use
  Company Number: US-BAYER-2013-058146

PATIENT
  Age: 60 Year
  Sex: Female
  Weight: 65.31 kg

DRUGS (2)
  1. ALEVE LIQUID GELS [Suspect]
     Indication: ARTHRITIS
     Dosage: 2-4 DF, QD
     Route: 048
     Dates: start: 201211
  2. ALEVE CAPLET [Suspect]
     Dosage: 2-4 DF, QD
     Route: 048
     Dates: start: 201211

REACTIONS (3)
  - Incorrect drug administration duration [None]
  - Incorrect dose administered [None]
  - Drug ineffective [None]
